FAERS Safety Report 9033444 (Version 1)
Quarter: 2013Q1

REPORT INFORMATION
  Report Type: Spontaneous
  Country: CA (occurrence: CA)
  Receive Date: 20130128
  Receipt Date: 20130128
  Transmission Date: 20140127
  Serious: Yes (Hospitalization)
  Sender: FDA-Public Use
  Company Number: CA-AMGEN-CANSP2012060950

PATIENT
  Age: 50 Year
  Sex: Female

DRUGS (1)
  1. ENBREL [Suspect]
     Indication: RHEUMATOID ARTHRITIS
     Dosage: 50 MG, QWK
     Route: 058
     Dates: start: 20120523, end: 20120606

REACTIONS (4)
  - Malaise [Recovered/Resolved]
  - Acne [Recovered/Resolved]
  - Generalised erythema [Recovered/Resolved]
  - Gait disturbance [Recovered/Resolved]
